FAERS Safety Report 4983971-4 (Version None)
Quarter: 2006Q2

REPORT INFORMATION
  Report Type: 
  Country: None (occurrence: None)
  Receive Date: 20060426
  Receipt Date: 20060419
  Transmission Date: 20061013
  Serious: Yes (Other)
  Sender: FDA-Public Use
  Company Number: FR-ABBOTT-06P-056-0331394-00

PATIENT
  Sex: Female

DRUGS (3)
  1. HUMIRA [Suspect]
     Indication: RHEUMATOID ARTHRITIS
     Route: 058
     Dates: start: 20060106, end: 20060324
  2. BISOPROLOL [Concomitant]
     Indication: HYPERTENSION
  3. REPAGLIDINE [Concomitant]
     Indication: DIABETES MELLITUS INSULIN-DEPENDENT

REACTIONS (1)
  - CARDIAC VALVE DISEASE [None]
